FAERS Safety Report 20416074 (Version 1)
Quarter: 2022Q1

REPORT INFORMATION
  Report Type: Spontaneous
  Country: US (occurrence: US)
  Receive Date: 20220202
  Receipt Date: 20220202
  Transmission Date: 20220423
  Serious: No
  Sender: FDA-Public Use
  Company Number: US-LANNETT COMPANY, INC.-US-2021LAN000096

PATIENT
  Age: 75 Year
  Sex: Female

DRUGS (1)
  1. BACLOFEN [Suspect]
     Active Substance: BACLOFEN
     Indication: Product used for unknown indication
     Dosage: UNK
     Route: 048

REACTIONS (7)
  - Dry eye [Unknown]
  - Emotional distress [Unknown]
  - Adverse drug reaction [Unknown]
  - Vision blurred [Unknown]
  - Migraine [Unknown]
  - Patient isolation [Unknown]
  - Product physical issue [Unknown]

NARRATIVE: CASE EVENT DATE: 20210306
